FAERS Safety Report 19965733 (Version 1)
Quarter: 2021Q4

REPORT INFORMATION
  Report Type: Spontaneous
  Country: US (occurrence: US)
  Receive Date: 20211018
  Receipt Date: 20211018
  Transmission Date: 20220303
  Serious: No
  Sender: FDA-Public Use
  Company Number: US-PFIZER INC-202100957585

PATIENT
  Sex: Male

DRUGS (1)
  1. RIFABUTIN [Suspect]
     Active Substance: RIFABUTIN
     Dosage: 150 MG, 2X/DAY

REACTIONS (5)
  - Chromaturia [Unknown]
  - Dysgeusia [Unknown]
  - Glossitis [Unknown]
  - Gingival discomfort [Unknown]
  - Ageusia [Unknown]
